FAERS Safety Report 4652855-3 (Version None)
Quarter: 2005Q2

REPORT INFORMATION
  Report Type: 
  Country: None (occurrence: None)
  Receive Date: 20050502
  Receipt Date: 20050412
  Transmission Date: 20051028
  Serious: No
  Sender: FDA-Public Use
  Company Number: PHFR2005GB01495

PATIENT
  Sex: Female

DRUGS (2)
  1. BACLOFEN [Suspect]
     Indication: CEREBRAL PALSY
  2. DANTROLENE SODIUM [Concomitant]

REACTIONS (3)
  - HALLUCINATION [None]
  - MUSCLE SPASMS [None]
  - PARANOIA [None]
